FAERS Safety Report 5693156-4 (Version None)
Quarter: 2008Q2

REPORT INFORMATION
  Report Type: 
  Country: None (occurrence: None)
  Receive Date: 20080402
  Receipt Date: 20080402
  Transmission Date: 20081010
  Serious: Yes (Other)
  Sender: FDA-Public Use
  Company Number: None

PATIENT
  Sex: Female
  Weight: 78.9259 kg

DRUGS (1)
  1. MINOCYCLINE HCL [Suspect]
     Dosage: 100 MG BID PO  ONE DOSE ONLY
     Route: 048
     Dates: start: 20080331, end: 20080331

REACTIONS (1)
  - DRUG HYPERSENSITIVITY [None]
